FAERS Safety Report 6719672-1 (Version None)
Quarter: 2010Q2

REPORT INFORMATION
  Report Type: 
  Country: None (occurrence: None)
  Receive Date: 20100510
  Receipt Date: 20100510
  Transmission Date: 20101027
  Serious: Yes (Other)
  Sender: FDA-Public Use
  Company Number: None

PATIENT
  Age: 54 Year
  Sex: Male
  Weight: 66.6788 kg

DRUGS (9)
  1. VORINOSTAT [Suspect]
     Indication: NON-SMALL CELL LUNG CANCER
     Dosage: 300MG DAILY ORAL
     Route: 048
     Dates: start: 20100309, end: 20100407
  2. BORTEZOMIB [Suspect]
     Indication: NON-SMALL CELL LUNG CANCER
     Dosage: 1.0MG/M2 DAY 1, 4, 8, 11 IV
     Route: 042
     Dates: start: 20100309, end: 20100406
  3. DULCOLAX [Concomitant]
  4. DEXAMETHASONE [Concomitant]
  5. DIFLUCAN [Concomitant]
  6. LORAZEPAM [Concomitant]
  7. OMEPRAZOLE [Concomitant]
  8. OXYCONTIN [Concomitant]
  9. OXYCODONE [Concomitant]

REACTIONS (1)
  - LYMPHOPENIA [None]
